FAERS Safety Report 6708680-2 (Version None)
Quarter: 2010Q2

REPORT INFORMATION
  Report Type: 
  Country: None (occurrence: None)
  Receive Date: 20100503
  Receipt Date: 20100423
  Transmission Date: 20101027
  Serious: Yes (Other)
  Sender: FDA-Public Use
  Company Number: US-ABBOTT-10P-163-0629419-00

PATIENT
  Sex: Male
  Weight: 80 kg

DRUGS (2)
  1. NIMBEX [Suspect]
     Indication: ANAESTHESIA PROCEDURE
     Dosage: 10 MG WITH ANOTHER 20 MG GIVEN LATER
     Dates: start: 20100222, end: 20100222
  2. PLAVIX [Concomitant]
     Indication: DRUG USE FOR UNKNOWN INDICATION

REACTIONS (5)
  - CARDIAC DISORDER [None]
  - CIRCULATORY COLLAPSE [None]
  - DIAPHRAGMATIC DISORDER [None]
  - ELECTROMECHANICAL DISSOCIATION [None]
  - PERICARDIAL EFFUSION [None]
